FAERS Safety Report 9167616 (Version 1)
Quarter: 2013Q1

REPORT INFORMATION
  Report Type: Report from Study
  Country: US (occurrence: US)
  Receive Date: 20130318
  Receipt Date: 20130318
  Transmission Date: 20140127
  Serious: Yes (Other)
  Sender: FDA-Public Use
  Company Number: US-BAYER-2013-030490

PATIENT
  Age: 59 Year
  Sex: Male

DRUGS (2)
  1. REGORAFENIB [Suspect]
     Indication: COLON CANCER
     Dosage: 160 MG, QD
     Route: 048
     Dates: start: 20121220
  2. REGORAFENIB [Suspect]
     Indication: COLON CANCER
     Dosage: 80 MG, QD
     Route: 048

REACTIONS (7)
  - Headache [None]
  - Pain [None]
  - Arthralgia [None]
  - Burning sensation [None]
  - Oedema peripheral [None]
  - Skin exfoliation [None]
  - Pain [None]
